FAERS Safety Report 6555246-3 (Version None)
Quarter: 2010Q1

REPORT INFORMATION
  Report Type: 
  Country: None (occurrence: None)
  Receive Date: 20100128
  Receipt Date: 20081222
  Transmission Date: 20100710
  Serious: No
  Sender: FDA-Public Use
  Company Number: A0761736A

PATIENT
  Age: 37 Year
  Sex: Female

DRUGS (2)
  1. WELLBUTRIN [Suspect]
     Indication: DRUG USE FOR UNKNOWN INDICATION
     Route: 065
     Dates: start: 20080101
  2. XYREM [Suspect]
     Indication: FIBROMYALGIA
     Route: 048
     Dates: start: 20081023

REACTIONS (4)
  - HEADACHE [None]
  - INSOMNIA [None]
  - RESTLESSNESS [None]
  - TREMOR [None]
